FAERS Safety Report 8542015-8 (Version None)
Quarter: 2012Q3

REPORT INFORMATION
  Report Type: 
  Country: None (occurrence: None)
  Receive Date: 20120726
  Receipt Date: 20111003
  Transmission Date: 20120928
  Serious: No
  Sender: FDA-Public Use
  Company Number: US-ASTRAZENECA-2011SE59380

PATIENT
  Sex: Male

DRUGS (6)
  1. XANAX [Concomitant]
  2. THYROID MEDICATION [Concomitant]
  3. SEROQUEL XR [Suspect]
     Indication: DEPRESSION
     Dosage: HS
     Route: 048
  4. NEURONTIN [Concomitant]
  5. CHOLESTEROL MEDICATION [Concomitant]
  6. TRAMADOL HYDROCHLORIDE [Concomitant]

REACTIONS (2)
  - INSOMNIA [None]
  - DRUG DOSE OMISSION [None]
